FAERS Safety Report 10499876 (Version 1)
Quarter: 2014Q4

REPORT INFORMATION
  Report Type: Spontaneous
  Country: US (occurrence: US)
  Receive Date: 20141006
  Receipt Date: 20141006
  Transmission Date: 20150528
  Serious: No
  Sender: FDA-Public Use
  Company Number: US-AMGEN INC.-USASP2014058642

PATIENT
  Sex: Female
  Weight: 74.84 kg

DRUGS (1)
  1. PROLIA [Suspect]
     Active Substance: DENOSUMAB
     Indication: OSTEOPOROSIS POSTMENOPAUSAL
     Route: 065

REACTIONS (7)
  - Dyspepsia [Unknown]
  - Bone density decreased [Unknown]
  - Hyperlipidaemia [Unknown]
  - Asthma [Unknown]
  - Osteoarthritis [Unknown]
  - Menopausal symptoms [Unknown]
  - Gastrooesophageal reflux disease [Unknown]
